FAERS Safety Report 6717950-3 (Version None)
Quarter: 2010Q2

REPORT INFORMATION
  Report Type: 
  Country: None (occurrence: None)
  Receive Date: 20100510
  Receipt Date: 20100427
  Transmission Date: 20101027
  Serious: Yes (Hospitalization, Other)
  Sender: FDA-Public Use
  Company Number: PHHY2010GB05793

PATIENT
  Sex: Male

DRUGS (6)
  1. CLOZARIL [Suspect]
     Indication: SCHIZOPHRENIA
     Dosage: UNK
     Dates: start: 19960703, end: 20100128
  2. AMLODIPINE [Concomitant]
  3. AMISULPRIDE [Concomitant]
     Dosage: 200 MG, BID
     Route: 048
  4. HALOPERIDOL [Concomitant]
  5. BENDROFLUMETHIAZIDE [Concomitant]
  6. ARIPIPRAZOLE [Concomitant]

REACTIONS (13)
  - ARRHYTHMIA [None]
  - ASPARTATE AMINOTRANSFERASE INCREASED [None]
  - BLOOD CREATINE PHOSPHOKINASE INCREASED [None]
  - BLOOD OSMOLARITY DECREASED [None]
  - BLOOD SODIUM DECREASED [None]
  - CARDIAC DISORDER [None]
  - CEREBROVASCULAR ACCIDENT [None]
  - HEMIPARESIS [None]
  - HYPERTENSION [None]
  - POLYDIPSIA [None]
  - SOMNOLENCE [None]
  - SYNCOPE [None]
  - URINARY INCONTINENCE [None]
